FAERS Safety Report 8559341-9 (Version None)
Quarter: 2012Q3

REPORT INFORMATION
  Report Type: 
  Country: None (occurrence: None)
  Receive Date: 20120802
  Receipt Date: 20120723
  Transmission Date: 20120928
  Serious: Yes (Hospitalization, Disabling, Other)
  Sender: FDA-Public Use
  Company Number: US-009507513-1207USA011413

PATIENT

DRUGS (13)
  1. ASPIRIN [Suspect]
     Dosage: UNK MG, UNK
  2. PLAVIX [Suspect]
     Dosage: UNK
  3. COUMADIN [Suspect]
  4. LOPRESSOR [Concomitant]
     Dosage: UNK, BID
  5. HYDROCHLOROTHIAZIDE [Suspect]
     Dosage: UNK UNK, QD
  6. GLUCOPHAGE [Suspect]
     Dosage: 5 MG, UNK
  7. METOPROLOL TARTRATE [Suspect]
     Dosage: 100 MG, BID
  8. ZOCOR [Suspect]
     Dosage: UNK
     Route: 048
  9. PREMPRO [Suspect]
     Dosage: UNK
     Route: 048
  10. LASIX [Suspect]
  11. METFORMIN HYDROCHLORIDE [Suspect]
     Dosage: UNK
  12. LOPERAMIDE HCL [Suspect]
     Dosage: 2 MG, BID
  13. NATTOKINASE [Suspect]
     Dosage: 200 MG, BID

REACTIONS (17)
  - COORDINATION ABNORMAL [None]
  - MUSCLE DISORDER [None]
  - MUSCULOSKELETAL STIFFNESS [None]
  - MEMORY IMPAIRMENT [None]
  - DRUG INEFFECTIVE [None]
  - MOVEMENT DISORDER [None]
  - URINARY INCONTINENCE [None]
  - ABDOMINAL DISCOMFORT [None]
  - ABASIA [None]
  - PHYSICAL DISABILITY [None]
  - CEREBROVASCULAR ACCIDENT [None]
  - FAECAL INCONTINENCE [None]
  - DIABETES MELLITUS [None]
  - LOSS OF CONTROL OF LEGS [None]
  - SPEECH DISORDER [None]
  - CARDIAC DISORDER [None]
  - DYSGRAPHIA [None]
